FAERS Safety Report 7481533-0 (Version None)
Quarter: 2011Q2

REPORT INFORMATION
  Report Type: 
  Country: None (occurrence: None)
  Receive Date: 20110516
  Receipt Date: 20110512
  Transmission Date: 20111010
  Serious: Yes (Other)
  Sender: FDA-Public Use
  Company Number: PHHO2011BE08165

PATIENT
  Sex: Female

DRUGS (9)
  1. GLUCOSAMINE [Concomitant]
  2. ALLOPURINOL [Concomitant]
  3. METFORMIN HCL [Concomitant]
  4. ACETYL SALICYLIC ACID USP BAT [Concomitant]
  5. TAMOXIFEN CITRATE [Concomitant]
  6. NEBIVOLOL HCL [Concomitant]
  7. LETROZOLE [Suspect]
     Indication: BREAST CANCER
     Dosage: 2.5 MG, DAILY
     Route: 048
     Dates: start: 20101129
  8. PERINDOPRIL ERBUMINE [Concomitant]
  9. ACETAMINOPHEN [Concomitant]

REACTIONS (1)
  - ENDOMETRIAL DISORDER [None]
